FAERS Safety Report 9423805 (Version 1)
Quarter: 2013Q3

REPORT INFORMATION
  Report Type: Report from Study
  Country: BE (occurrence: BE)
  Receive Date: 20130728
  Receipt Date: 20130728
  Transmission Date: 20140515
  Serious: Yes (Other)
  Sender: FDA-Public Use
  Company Number: BE-ROCHE-1253304

PATIENT
  Age: 75 Year
  Sex: Female
  Weight: 67 kg

DRUGS (4)
  1. AVASTIN [Suspect]
     Indication: OVARIAN CANCER
     Route: 042
     Dates: start: 20121126, end: 20130521
  2. AMLOR [Concomitant]
     Indication: HYPERTENSION
     Route: 048
  3. BURINEX [Concomitant]
     Indication: OEDEMA
     Route: 048
  4. BELSAR PLUS [Concomitant]
     Indication: HYPERTENSION
     Dosage: DOSE: 40/25
     Route: 048

REACTIONS (1)
  - Hip fracture [Recovered/Resolved]
